FAERS Safety Report 25523815 (Version 2)
Quarter: 2025Q3

REPORT INFORMATION
  Report Type: Report from Study
  Country: US (occurrence: US)
  Receive Date: 20250707
  Receipt Date: 20250708
  Transmission Date: 20251020
  Serious: Yes (Hospitalization, Other)
  Sender: ABBVIE
  Company Number: US-ABBVIE-6357480

PATIENT
  Sex: Female

DRUGS (1)
  1. SKYRIZI [Suspect]
     Active Substance: RISANKIZUMAB-RZAA
     Indication: Crohn^s disease
     Route: 058
     Dates: start: 20240419

REACTIONS (3)
  - Intestinal obstruction [Recovered/Resolved]
  - Hernia [Recovered/Resolved]
  - Paraesthesia [Unknown]
